FAERS Safety Report 9184530 (Version 1)
Quarter: 2012Q4

REPORT INFORMATION
  Report Type: 
  Country: US (occurrence: US)
  Receive Date: 20121101
  Receipt Date: 20121101
  Transmission Date: 20130627
  Serious: Yes (Other)
  Sender: FDA-Public Use
  Company Number: US-PFIZER INC-2012271685

PATIENT
  Sex: Female
  Weight: 83.9 kg

DRUGS (2)
  1. CHANTIX [Suspect]
     Indication: SMOKING CESSATION THERAPY
     Dosage: UNK
  2. MESTINON [Concomitant]
     Indication: MYASTHENIA GRAVIS
     Dosage: 120 mg, 4x/day

REACTIONS (1)
  - Chronic obstructive pulmonary disease [Not Recovered/Not Resolved]
